FAERS Safety Report 16476588 (Version 1)
Quarter: 2019Q2

REPORT INFORMATION
  Report Type: Spontaneous
  Country: PT (occurrence: PT)
  Receive Date: 20190626
  Receipt Date: 20190626
  Transmission Date: 20190711
  Serious: Yes (Hospitalization)
  Sender: FDA-Public Use
  Company Number: PT-MYLANLABS-2019M1058219

PATIENT
  Age: 62 Year
  Sex: Male

DRUGS (1)
  1. SILDENAFIL. [Suspect]
     Active Substance: SILDENAFIL
     Indication: PRODUCT USED FOR UNKNOWN INDICATION
     Dosage: UNK

REACTIONS (7)
  - Condition aggravated [Unknown]
  - Hyperbilirubinaemia [Unknown]
  - Cholangiocarcinoma [Unknown]
  - Malaise [Unknown]
  - Diarrhoea [Unknown]
  - Dysuria [Unknown]
  - Jaundice [Unknown]
